FAERS Safety Report 16919087 (Version 3)
Quarter: 2019Q4

REPORT INFORMATION
  Report Type: Spontaneous
  Country: GB (occurrence: GB)
  Receive Date: 20191015
  Receipt Date: 20191217
  Transmission Date: 20200122
  Serious: Yes (Other)
  Sender: FDA-Public Use
  Company Number: GB-MYLANLABS-2019M1089427

PATIENT
  Age: 33 Year
  Sex: Male

DRUGS (1)
  1. CLOZARIL [Suspect]
     Active Substance: CLOZAPINE
     Indication: SCHIZOPHRENIA
     Dosage: UNK
     Route: 048
     Dates: start: 20050913

REACTIONS (7)
  - Eosinophil count increased [Unknown]
  - Red cell distribution width increased [Unknown]
  - Leukocytosis [Recovering/Resolving]
  - Monocyte count increased [Unknown]
  - Differential white blood cell count abnormal [Not Recovered/Not Resolved]
  - Neutrophilia [Recovering/Resolving]
  - Lymphocyte percentage decreased [Unknown]

NARRATIVE: CASE EVENT DATE: 20190918
